FAERS Safety Report 5990740-5 (Version None)
Quarter: 2008Q4

REPORT INFORMATION
  Report Type: 
  Country: None (occurrence: None)
  Receive Date: 20081211
  Receipt Date: 20081201
  Transmission Date: 20090506
  Serious: Yes (Hospitalization)
  Sender: FDA-Public Use
  Company Number: JP-WATSON-2008-07081

PATIENT
  Sex: Male

DRUGS (2)
  1. ERYTHROMYCIN  (WATSON LABORATORIES) [Suspect]
     Indication: GASTROINTESTINAL MOTILITY DISORDER
     Dosage: 20 MG/KG, DAILY
     Route: 042
  2. ERYTHROMYCIN  (WATSON LABORATORIES) [Suspect]
     Indication: ENTERAL NUTRITION

REACTIONS (1)
  - PYLORIC STENOSIS [None]
